FAERS Safety Report 14152892 (Version 3)
Quarter: 2018Q2

REPORT INFORMATION
  Report Type: Spontaneous
  Country: FR (occurrence: FR)
  Receive Date: 20171102
  Receipt Date: 20180423
  Transmission Date: 20180711
  Serious: Yes (Life-Threatening, Hospitalization, Other)
  Sender: FDA-Public Use
  Company Number: FR-GILEAD-2017-0301410

PATIENT
  Age: 70 Year
  Sex: Male
  Weight: 91 kg

DRUGS (16)
  1. COAPROVEL [Concomitant]
     Active Substance: HYDROCHLOROTHIAZIDE\IRBESARTAN
  2. LEVOTHYROXINE. [Concomitant]
     Active Substance: LEVOTHYROXINE
  3. TAHOR [Concomitant]
     Active Substance: ATORVASTATIN CALCIUM
  4. BACTRIM [Concomitant]
     Active Substance: SULFAMETHOXAZOLE\TRIMETHOPRIM
     Dosage: 400 MG, QD
     Route: 065
     Dates: start: 20170926, end: 20170928
  5. BACTRIM [Concomitant]
     Active Substance: SULFAMETHOXAZOLE\TRIMETHOPRIM
     Dosage: 4800 MG, QD
     Route: 065
     Dates: start: 20170904, end: 20170925
  6. KARDEGIC [Concomitant]
     Active Substance: ASPIRIN DL-LYSINE
  7. NEURONTIN [Concomitant]
     Active Substance: GABAPENTIN
  8. CORTANCYL [Concomitant]
     Active Substance: PREDNISONE
  9. FOLIC ACID. [Concomitant]
     Active Substance: FOLIC ACID
  10. INSULIN [Concomitant]
     Active Substance: INSULIN NOS
  11. VIREAD [Suspect]
     Active Substance: TENOFOVIR DISOPROXIL FUMARATE
     Indication: HEPATITIS B
     Dosage: 245 MG, QD
     Route: 048
     Dates: start: 2012, end: 20170929
  12. CELLCEPT [Concomitant]
     Active Substance: MYCOPHENOLATE MOFETIL\MYCOPHENOLATE MOFETIL HYDROCHLORIDE
     Dosage: 750 MG, BID
     Route: 065
     Dates: start: 20171014
  13. XATRAL                             /00975301/ [Concomitant]
     Active Substance: ALFUZOSIN
  14. CALCIPARINE [Concomitant]
     Active Substance: HEPARIN CALCIUM
  15. LANSOPRAZOLE. [Concomitant]
     Active Substance: LANSOPRAZOLE
  16. WELLVONE [Concomitant]
     Active Substance: ATOVAQUONE

REACTIONS (3)
  - Renal tubular disorder [Unknown]
  - Acute kidney injury [Recovered/Resolved]
  - Medication error [Unknown]

NARRATIVE: CASE EVENT DATE: 20170926
